FAERS Safety Report 4570419-7 (Version None)
Quarter: 2005Q1

REPORT INFORMATION
  Report Type: 
  Country: None (occurrence: None)
  Receive Date: 20050204
  Receipt Date: 20040322
  Transmission Date: 20050727
  Serious: No
  Sender: FDA-Public Use
  Company Number: US-MERCK-0403USA02052B1

PATIENT
  Age: 0 Day
  Sex: Male
  Weight: 4 kg

DRUGS (8)
  1. SINGULAIR [Suspect]
     Indication: ASTHMA
  2. SINGULAIR [Suspect]
     Indication: HYPERSENSITIVITY
  3. FLONASE [Concomitant]
     Indication: ASTHMA
  4. FLONASE [Concomitant]
     Indication: HYPERSENSITIVITY
  5. SEREVENT [Concomitant]
     Indication: ASTHMA
  6. SEREVENT [Concomitant]
     Indication: HYPERSENSITIVITY
  7. VITAFOL CAPLETS [Concomitant]
     Dates: start: 20030101
  8. ALBUTEROL [Concomitant]

REACTIONS (3)
  - CEPHALO-PELVIC DISPROPORTION [None]
  - ECZEMA [None]
  - JAUNDICE [None]
